FAERS Safety Report 15068833 (Version 1)
Quarter: 2018Q2

REPORT INFORMATION
  Report Type: Spontaneous
  Country: CA (occurrence: CA)
  Receive Date: 20180626
  Receipt Date: 20180626
  Transmission Date: 20180711
  Serious: Yes (Other)
  Sender: FDA-Public Use
  Company Number: CA-TEVA-2018-CA-912414

PATIENT
  Age: 38 Year
  Sex: Female

DRUGS (1)
  1. PURINETHOL [Suspect]
     Active Substance: MERCAPTOPURINE
     Dosage: 50 MILLIGRAM DAILY;
     Route: 048
     Dates: start: 2012

REACTIONS (5)
  - Ulcer [Unknown]
  - Enteritis [Unknown]
  - Crohn^s disease [Unknown]
  - Pain [Unknown]
  - Drug ineffective [Unknown]
